FAERS Safety Report 10982587 (Version 1)
Quarter: 2015Q2

REPORT INFORMATION
  Report Type: Spontaneous
  Country: US (occurrence: None)
  Receive Date: 20150402
  Receipt Date: 20150402
  Transmission Date: 20150821
  Serious: No
  Sender: FDA-Public Use
  Company Number: None

PATIENT
  Age: 39 Year
  Sex: Female

DRUGS (14)
  1. AMPYRA [Suspect]
     Active Substance: DALFAMPRIDINE
     Indication: MULTIPLE SCLEROSIS
     Route: 048
     Dates: start: 201310
  2. MIRENA [Concomitant]
     Active Substance: LEVONORGESTREL
  3. GLATIRAMER (COPAXONE) [Concomitant]
  4. TRAZODONE (DESYREL)  FLUTICASONE (FLONASE)  MIRENA [Concomitant]
  5. FLUTICASONE (FLONASE) [Concomitant]
  6. CEPHALEXIN (KEFLEX) [Concomitant]
  7. AP [Concomitant]
  8. FLUOCINOLONE-HYDROQ-TRETINOIN (TRI-LUMA)  MELOXICAM (MOBIC) [Concomitant]
  9. NORTRIPTYLINE (AVENTYL/PAMELOR) [Concomitant]
  10. LIDOCAINE-PRILOCAINE (EMLA) [Concomitant]
  11. OMEPRAZONE (PRILOSEC) [Concomitant]
  12. TEMAZEPAM (RESTORIL) [Concomitant]
  13. ALDARA [Concomitant]
     Active Substance: IMIQUIMOD
  14. HYDROCORTISONE (PROCTOZONE-HC) [Concomitant]

REACTIONS (1)
  - Laboratory test abnormal [None]

NARRATIVE: CASE EVENT DATE: 20150319
